FAERS Safety Report 8007950-8 (Version None)
Quarter: 2011Q4

REPORT INFORMATION
  Report Type: 
  Country: None (occurrence: None)
  Receive Date: 20111227
  Receipt Date: 20111213
  Transmission Date: 20120403
  Serious: Yes (Hospitalization, Other)
  Sender: FDA-Public Use
  Company Number: US-ELI_LILLY_AND_COMPANY-US201012005868

PATIENT
  Sex: Female

DRUGS (5)
  1. CENTRUM SILVER [Concomitant]
  2. FORTEO [Suspect]
     Dosage: 20 UG, QD
  3. CITRACAL [Concomitant]
  4. CALCIUM ACETATE [Concomitant]
  5. FORTEO [Suspect]
     Indication: OSTEOPOROSIS
     Dosage: 20 UG, DAILY (1/D)
     Route: 058
     Dates: start: 20100101

REACTIONS (2)
  - DEVICE BREAKAGE [None]
  - LUNG NEOPLASM MALIGNANT [None]
